FAERS Safety Report 7582479-X (Version None)
Quarter: 2011Q2

REPORT INFORMATION
  Report Type: 
  Country: None (occurrence: None)
  Receive Date: 20110623
  Receipt Date: 20110611
  Transmission Date: 20111010
  Serious: Yes (Hospitalization)
  Sender: FDA-Public Use
  Company Number: 2011AP001214

PATIENT
  Age: 64 Year
  Sex: Female

DRUGS (1)
  1. DICLOFENAC SODIUM [Suspect]
     Indication: OSTEOARTHRITIS
     Dosage: 50 MG, TID
     Route: 062

REACTIONS (8)
  - WEIGHT DECREASED [None]
  - HYPOCHROMIC ANAEMIA [None]
  - INTESTINAL DIAPHRAGM DISEASE [None]
  - GASTRIC ULCER [None]
  - DIARRHOEA [None]
  - GASTROINTESTINAL DISORDER [None]
  - GASTRITIS [None]
  - COLONIC STENOSIS [None]
